FAERS Safety Report 4910813-5 (Version None)
Quarter: 2006Q1

REPORT INFORMATION
  Report Type: 
  Country: None (occurrence: None)
  Receive Date: 20060214
  Receipt Date: 20060127
  Transmission Date: 20060701
  Serious: Yes (Other)
  Sender: FDA-Public Use
  Company Number: CA-GLAXOSMITHKLINE-A0591538A

PATIENT
  Age: 44 Year
  Sex: Female

DRUGS (4)
  1. SEREVENT [Suspect]
     Indication: BRONCHITIS
     Dosage: 2PUFF TWICE PER DAY
     Route: 055
     Dates: start: 20060110, end: 20060113
  2. FLOVENT [Concomitant]
     Indication: UPPER RESPIRATORY TRACT INFECTION
     Dosage: 250MG TWICE PER DAY
     Route: 055
     Dates: start: 20060110
  3. VENTOLIN [Concomitant]
     Indication: UPPER RESPIRATORY TRACT INFECTION
     Route: 055
     Dates: start: 20060110
  4. SEROQUEL [Concomitant]
     Dosage: 100MG PER DAY
     Route: 048

REACTIONS (10)
  - ANGER [None]
  - CHEST PAIN [None]
  - EMOTIONAL DISTRESS [None]
  - ERUCTATION [None]
  - FEAR [None]
  - GLOSSODYNIA [None]
  - ORAL DISCOMFORT [None]
  - PARAESTHESIA ORAL [None]
  - PHARYNGOLARYNGEAL PAIN [None]
  - PSYCHOTIC DISORDER [None]
